FAERS Safety Report 9663543 (Version 3)
Quarter: 2013Q4

REPORT INFORMATION
  Report Type: Spontaneous
  Country: US (occurrence: US)
  Receive Date: 20131101
  Receipt Date: 20131203
  Transmission Date: 20140711
  Serious: Yes (Other)
  Sender: FDA-Public Use
  Company Number: US-PFIZER INC-2013308877

PATIENT
  Age: 24 Year
  Sex: Male
  Weight: 58.05 kg

DRUGS (7)
  1. ZYVOX [Suspect]
     Indication: EAR INFECTION STAPHYLOCOCCAL
     Dosage: 600 MG, 4X/DAY
     Route: 042
  2. ZYVOX [Suspect]
     Dosage: 600 MG, 3X/DAY
     Route: 042
  3. ZYVOX [Suspect]
     Dosage: 600 MG, 2X/DAY
     Route: 042
  4. ZYVOX [Suspect]
     Dosage: 600 MG, 4X/DAY
     Route: 042
  5. VANCOMYCIN HCL [Suspect]
     Indication: EAR INFECTION STAPHYLOCOCCAL
     Dosage: UNK
  6. BACTRIM [Suspect]
     Indication: STAPHYLOCOCCAL INFECTION
     Dosage: UNK
  7. GAMUNEX [Concomitant]
     Dosage: UNK

REACTIONS (2)
  - Drug ineffective [Unknown]
  - Infection [Unknown]
